FAERS Safety Report 23140757 (Version 3)
Quarter: 2024Q3

REPORT INFORMATION
  Report Type: Spontaneous
  Country: PR (occurrence: PR)
  Receive Date: 20231103
  Receipt Date: 20240830
  Transmission Date: 20241017
  Serious: No
  Sender: BRISTOL MYERS SQUIBB
  Company Number: PR-BRISTOL-MYERS SQUIBB COMPANY-2023-156200

PATIENT
  Age: 82 Year
  Sex: Male

DRUGS (7)
  1. LENALIDOMIDE [Suspect]
     Active Substance: LENALIDOMIDE
     Indication: Plasma cell myeloma
     Dosage: DAILY   (W/O REST)
     Route: 048
     Dates: start: 20230909
  2. LENALIDOMIDE [Suspect]
     Active Substance: LENALIDOMIDE
     Dosage: DAILY   (W/O REST)
     Route: 048
  3. ZOLEDRONIC ACID [Concomitant]
     Active Substance: ZOLEDRONIC ACID
     Indication: Product used for unknown indication
  4. LISINOPRIL [Concomitant]
     Active Substance: LISINOPRIL
     Indication: Product used for unknown indication
  5. BACLOFEN [Concomitant]
     Active Substance: BACLOFEN
     Indication: Product used for unknown indication
  6. ACETAMINOPHEN [Concomitant]
     Active Substance: ACETAMINOPHEN
     Indication: Product used for unknown indication
  7. TIZANIDINE [Concomitant]
     Active Substance: TIZANIDINE
     Indication: Product used for unknown indication

REACTIONS (2)
  - Neck pain [Not Recovered/Not Resolved]
  - Back pain [Not Recovered/Not Resolved]

NARRATIVE: CASE EVENT DATE: 20231028
